FAERS Safety Report 8923354 (Version 1)
Quarter: 2012Q4

REPORT INFORMATION
  Report Type: 
  Country: AR (occurrence: AR)
  Receive Date: 20121123
  Receipt Date: 20121123
  Transmission Date: 20130627
  Serious: Yes (Other)
  Sender: FDA-Public Use
  Company Number: PHHY2011AR106716

PATIENT
  Age: 58 Year
  Sex: Female

DRUGS (2)
  1. EXFORGE [Suspect]
     Indication: HYPERTENSION
     Dosage: 1 DF (Vals 160 mg, amlo 05 mg), daily
     Route: 048
  2. EXFORGE [Suspect]
     Indication: CARDIAC DISORDER

REACTIONS (8)
  - Cerebral thrombosis [Unknown]
  - Syncope [Unknown]
  - Visual acuity reduced [Unknown]
  - Brain injury [Unknown]
  - Blood pressure systolic increased [Recovered/Resolved]
  - Nervousness [Unknown]
  - Blood pressure inadequately controlled [Unknown]
  - Drug ineffective [Unknown]
